FAERS Safety Report 8004973-X (Version None)
Quarter: 2011Q4

REPORT INFORMATION
  Report Type: 
  Country: None (occurrence: None)
  Receive Date: 20111223
  Receipt Date: 20111219
  Transmission Date: 20120403
  Serious: Yes (Hospitalization)
  Sender: FDA-Public Use
  Company Number: US-JNJFOC-20111208400

PATIENT
  Sex: Male

DRUGS (3)
  1. XARELTO [Suspect]
     Indication: KNEE OPERATION
     Route: 048
  2. ASPIRIN [Concomitant]
     Indication: ANTICOAGULANT THERAPY
  3. PLAVIX [Concomitant]
     Indication: ANTICOAGULANT THERAPY

REACTIONS (1)
  - MYOCARDIAL INFARCTION [None]
